FAERS Safety Report 14334637 (Version 7)
Quarter: 2022Q4

REPORT INFORMATION
  Report Type: Spontaneous
  Country: PL (occurrence: PL)
  Receive Date: 20171228
  Receipt Date: 20221013
  Transmission Date: 20230112
  Serious: Yes (Hospitalization, Other)
  Sender: FDA-Public Use
  Company Number: PL-EMA-DD-20171215-NEGIEVPROD-105414

PATIENT
  Age: 32 Year
  Sex: Male

DRUGS (26)
  1. GEMCITABINE HYDROCHLORIDE [Suspect]
     Active Substance: GEMCITABINE HYDROCHLORIDE
     Indication: Hodgkin^s disease recurrent
     Dosage: UNK UNK, UNKNOWN
     Route: 065
     Dates: start: 201512
  2. GEMCITABINE HYDROCHLORIDE [Suspect]
     Active Substance: GEMCITABINE HYDROCHLORIDE
     Indication: Hodgkin^s disease
  3. BENDAMUSTINE [Suspect]
     Active Substance: BENDAMUSTINE
     Indication: Hodgkin^s disease recurrent
     Dosage: UNK UNK, UNKNOWN
     Route: 042
     Dates: start: 20160101, end: 20170101
  4. BENDAMUSTINE [Suspect]
     Active Substance: BENDAMUSTINE
     Indication: Hodgkin^s disease
  5. IFOSFAMIDE [Suspect]
     Active Substance: IFOSFAMIDE
     Indication: Hodgkin^s disease recurrent
     Dosage: UNK UNK, UNKNOWN
     Route: 065
     Dates: start: 201512
  6. IFOSFAMIDE [Suspect]
     Active Substance: IFOSFAMIDE
     Indication: Hodgkin^s disease
  7. VINORELBINE [Suspect]
     Active Substance: VINORELBINE TARTRATE
     Indication: Hodgkin^s disease recurrent
     Dosage: UNK UNK, UNKNOWN
     Route: 065
     Dates: start: 20151201
  8. VINORELBINE [Suspect]
     Active Substance: VINORELBINE TARTRATE
     Indication: Hodgkin^s disease
  9. CARBOPLATIN [Suspect]
     Active Substance: CARBOPLATIN
     Indication: Hodgkin^s disease recurrent
     Dosage: UNK UNK, UNKNOWN
     Route: 065
     Dates: start: 201501
  10. CARBOPLATIN [Suspect]
     Active Substance: CARBOPLATIN
     Indication: Hodgkin^s disease
  11. DACARBAZINE [Suspect]
     Active Substance: DACARBAZINE
     Indication: Hodgkin^s disease
     Dosage: UNK UNK, UNKNOWN
     Route: 065
     Dates: start: 20121001, end: 20130801
  12. DACARBAZINE [Suspect]
     Active Substance: DACARBAZINE
     Indication: Metastases to lymph nodes
  13. BLEOMYCIN [Suspect]
     Active Substance: BLEOMYCIN SULFATE
     Indication: Hodgkin^s disease
     Dosage: UNK UNK, UNKNOWN
     Route: 065
     Dates: start: 20121001, end: 20130801
  14. BLEOMYCIN [Suspect]
     Active Substance: BLEOMYCIN SULFATE
     Indication: Metastases to lymph nodes
  15. ETOPOSIDE [Suspect]
     Active Substance: ETOPOSIDE
     Indication: Hodgkin^s disease recurrent
     Dosage: UNK UNK, UNKNOWN
     Route: 065
     Dates: start: 20150101
  16. ETOPOSIDE [Suspect]
     Active Substance: ETOPOSIDE
     Indication: Hodgkin^s disease
  17. DOXORUBICIN [Suspect]
     Active Substance: DOXORUBICIN
     Indication: Hodgkin^s disease
     Dosage: UNK UNK, UNKNOWN
     Route: 065
     Dates: start: 20121001, end: 20130801
  18. DOXORUBICIN [Suspect]
     Active Substance: DOXORUBICIN
     Indication: Metastases to lymph nodes
  19. VINBLASTINE [Suspect]
     Active Substance: VINBLASTINE
     Indication: Hodgkin^s disease
     Dosage: UNK UNK, UNKNOWN
     Route: 065
     Dates: start: 20121001, end: 20130801
  20. VINBLASTINE [Suspect]
     Active Substance: VINBLASTINE
     Indication: Metastases to lymph nodes
  21. BRENTUXIMAB [Suspect]
     Active Substance: BRENTUXIMAB
     Indication: Hodgkin^s disease recurrent
     Dosage: UNK UNK, UNKNOWN
     Route: 065
     Dates: start: 20160101, end: 20170101
  22. BRENTUXIMAB [Suspect]
     Active Substance: BRENTUXIMAB
     Indication: Hodgkin^s disease
  23. IFOSFAMIDE [Suspect]
     Active Substance: IFOSFAMIDE
     Indication: Hodgkin^s disease recurrent
     Dosage: UNK UNK, UNKNOWN
     Route: 065
  24. AMIKACIN [Concomitant]
     Active Substance: AMIKACIN
     Indication: Pneumonia
     Dosage: 1 G, DAILY
     Route: 065
     Dates: start: 20170406
  25. CEFTAZIDIME [Concomitant]
     Active Substance: CEFTAZIDIME
     Indication: Pneumonia
     Dosage: 2 G, BID
     Route: 065
     Dates: start: 20170406
  26. LAKCID [LACTOBACILLUS ACIDOPHILUS] [Concomitant]
     Indication: Product used for unknown indication
     Dosage: 3 DF, UNKNOWN
     Route: 065
     Dates: start: 20170401

REACTIONS (10)
  - Demyelinating polyneuropathy [Recovering/Resolving]
  - Guillain-Barre syndrome [Recovering/Resolving]
  - Hypoaesthesia [Unknown]
  - Urinary retention [Unknown]
  - Hypotonia [Unknown]
  - Quadriplegia [Recovering/Resolving]
  - Areflexia [Unknown]
  - Hodgkin^s disease recurrent [Unknown]
  - Peripheral nerve injury [Unknown]
  - Off label use [Unknown]

NARRATIVE: CASE EVENT DATE: 20150101
